FAERS Safety Report 5244150-9 (Version None)
Quarter: 2007Q1

REPORT INFORMATION
  Report Type: 
  Country: None (occurrence: None)
  Receive Date: 20070222
  Receipt Date: 20070215
  Transmission Date: 20070707
  Serious: Yes (Death, Hospitalization)
  Sender: FDA-Public Use
  Company Number: SE-ROCHE-482869

PATIENT
  Age: 57 Year
  Sex: Female

DRUGS (7)
  1. CYMEVENE [Suspect]
     Indication: CYTOMEGALOVIRUS GASTROINTESTINAL INFECTION
     Dosage: REPORTED FORMULATION: POWDER FOR SOLUTION FOR INFUSION.
     Route: 042
     Dates: start: 20050401, end: 20050412
  2. CYMEVENE [Suspect]
     Dosage: AFTER A TOXIC CONCENTRATION THE DOSE WAS ADJUSTED.
     Route: 042
     Dates: start: 20050413, end: 20050416
  3. VFEND [Concomitant]
  4. PRECORTALON [Concomitant]
  5. FLAGYL [Concomitant]
  6. SANDIMMUNE [Concomitant]
  7. TAZOCIN [Concomitant]

REACTIONS (2)
  - HYPERBILIRUBINAEMIA [None]
  - THROMBOCYTOPENIA [None]
